FAERS Safety Report 6593684-3 (Version None)
Quarter: 2010Q1

REPORT INFORMATION
  Report Type: 
  Country: None (occurrence: None)
  Receive Date: 20100222
  Receipt Date: 20091116
  Transmission Date: 20100710
  Serious: No
  Sender: FDA-Public Use
  Company Number: US-BRISTOL-MYERS SQUIBB COMPANY-14859078

PATIENT
  Age: 62 Year
  Sex: Female
  Weight: 64 kg

DRUGS (11)
  1. ORENCIA [Suspect]
     Indication: RHEUMATOID ARTHRITIS
     Dosage: FIRST INFUSION ON (18-SEP-2009),SECOND INFUSION ON (30-OCT-2009).
     Route: 042
     Dates: start: 20090918
  2. ZETIA [Concomitant]
  3. LOMOTIL [Concomitant]
  4. AMBIEN [Concomitant]
  5. ACTONEL [Concomitant]
  6. PREDNISONE [Concomitant]
     Dosage: DOSE REDUCED TO 1TAB/NIGHT
  7. CALTRATE [Concomitant]
  8. CHROMIUM [Concomitant]
  9. COD LIVER OIL [Concomitant]
  10. ALOE [Concomitant]
  11. BIOTIN [Concomitant]

REACTIONS (1)
  - ALOPECIA [None]
